FAERS Safety Report 8877453 (Version 1)
Quarter: 2012Q4

REPORT INFORMATION
  Report Type: Spontaneous
  Country: US (occurrence: None)
  Receive Date: 20121026
  Receipt Date: 20121026
  Transmission Date: 20130627
  Serious: Yes (Other)
  Sender: FDA-Public Use
  Company Number: None

PATIENT
  Age: 62 Year
  Sex: Male

DRUGS (3)
  1. INCIVEK [Suspect]
     Dosage: 2 tablets q 7 to 9 hours
     Route: 048
  2. RIBAVIRIN [Concomitant]
  3. PEGASYS [Concomitant]

REACTIONS (4)
  - Oedema mouth [None]
  - Rash generalised [None]
  - Dysphagia [None]
  - Blister [None]
